FAERS Safety Report 16920379 (Version 1)
Quarter: 2019Q4

REPORT INFORMATION
  Report Type: Report from Study
  Country: US (occurrence: US)
  Receive Date: 20191015
  Receipt Date: 20191015
  Transmission Date: 20200122
  Serious: Yes (Hospitalization, Other)
  Sender: FDA-Public Use
  Company Number: US-GILEAD-2019-0433019

PATIENT
  Age: 27 Year
  Sex: Male

DRUGS (1)
  1. AZTREONAM LYSINE [Suspect]
     Active Substance: AZTREONAM LYSINE
     Indication: CYSTIC FIBROSIS
     Dosage: UNK, TID
     Dates: start: 20131021

REACTIONS (3)
  - Body temperature fluctuation [Recovered/Resolved with Sequelae]
  - Pseudomonas infection [Recovered/Resolved with Sequelae]
  - Oxygen saturation decreased [Recovered/Resolved with Sequelae]

NARRATIVE: CASE EVENT DATE: 20190926
